FAERS Safety Report 14213839 (Version 1)
Quarter: 2017Q4

REPORT INFORMATION
  Report Type: Spontaneous
  Country: US (occurrence: US)
  Receive Date: 20171122
  Receipt Date: 20171122
  Transmission Date: 20180321
  Serious: Yes (Death)
  Sender: FDA-Public Use
  Company Number: US-PFIZER INC-2017503056

PATIENT
  Age: 47 Year
  Sex: Female

DRUGS (2)
  1. SUTENT [Suspect]
     Active Substance: SUNITINIB MALATE
     Indication: MALIGNANT NEOPLASM OF THYMUS
     Dosage: 50 MG, CYCLIC (DAILY FOR 4 WEEKS ON 2 WEEKS OFF)
     Route: 048
     Dates: start: 201703
  2. SUTENT [Suspect]
     Active Substance: SUNITINIB MALATE
     Indication: BRAIN NEOPLASM MALIGNANT

REACTIONS (1)
  - Death [Fatal]

NARRATIVE: CASE EVENT DATE: 20170626
